FAERS Safety Report 12896565 (Version 1)
Quarter: 2016Q4

REPORT INFORMATION
  Report Type: Spontaneous
  Country: US (occurrence: US)
  Receive Date: 20161028
  Receipt Date: 20161028
  Transmission Date: 20170207
  Serious: No
  Sender: FDA-Public Use
  Company Number: None

PATIENT
  Age: 28 Year
  Sex: Female

DRUGS (1)
  1. REBIF [Suspect]
     Active Substance: INTERFERON BETA-1A
     Indication: MULTIPLE SCLEROSIS
     Dosage: ?          OTHER FREQUENCY:3 TIMES A WEEK;?
     Route: 058

REACTIONS (8)
  - Urticaria [None]
  - Migraine [None]
  - Injection site bruising [None]
  - Complication associated with device [None]
  - Injection site pain [None]
  - Pruritus [None]
  - Influenza like illness [None]
  - Rash [None]

NARRATIVE: CASE EVENT DATE: 20140901
